FAERS Safety Report 11465779 (Version 1)
Quarter: 2015Q3

REPORT INFORMATION
  Report Type: Spontaneous
  Country: US (occurrence: US)
  Receive Date: 20150907
  Receipt Date: 20150907
  Transmission Date: 20151125
  Serious: No
  Sender: FDA-Public Use
  Company Number: US-TAKEDA-2014TUS010475

PATIENT

DRUGS (1)
  1. ACTOS [Suspect]
     Active Substance: PIOGLITAZONE HYDROCHLORIDE
     Indication: PRODUCT USED FOR UNKNOWN INDICATION
     Dosage: 15 MG, QD
     Route: 065

REACTIONS (11)
  - Chest discomfort [Unknown]
  - Toothache [Unknown]
  - Nausea [Unknown]
  - Joint swelling [Unknown]
  - Fluid retention [Unknown]
  - Cardiac disorder [Unknown]
  - Dyspnoea [Unknown]
  - Sinusitis [Unknown]
  - Weight increased [Unknown]
  - Respiratory tract infection [Unknown]
  - Peripheral swelling [Unknown]
